FAERS Safety Report 13915583 (Version 1)
Quarter: 2017Q3

REPORT INFORMATION
  Report Type: Spontaneous
  Country: JP (occurrence: JP)
  Receive Date: 20170829
  Receipt Date: 20170829
  Transmission Date: 20171127
  Serious: Yes (Hospitalization)
  Sender: FDA-Public Use
  Company Number: JP-ASTRAZENECA-2017SE87597

PATIENT
  Age: 44 Year
  Sex: Male
  Weight: 59 kg

DRUGS (8)
  1. NEXIUM [Suspect]
     Active Substance: ESOMEPRAZOLE MAGNESIUM
     Dosage: DOSE UNKNOWN
     Route: 048
     Dates: start: 20170614, end: 20170624
  2. CRESTOR [Suspect]
     Active Substance: ROSUVASTATIN CALCIUM
     Dosage: DOSE UNKNOWN
     Route: 048
     Dates: start: 20170614, end: 20170624
  3. BAYASPIRIN [Concomitant]
     Active Substance: ASPIRIN
     Dosage: DOSE UNKNOWN
     Route: 065
     Dates: start: 20170613
  4. CLOPIDOGREL [Suspect]
     Active Substance: CLOPIDOGREL BISULFATE
     Dosage: DOSE UNKNOWN
     Route: 065
     Dates: start: 20170613
  5. ARTIST [Suspect]
     Active Substance: CARVEDILOL
     Dosage: DOSE UNKNOWN
     Route: 048
     Dates: start: 20170614, end: 20170624
  6. PERINDOPRIL [Suspect]
     Active Substance: PERINDOPRIL
     Dosage: DOSE UNKNOWN
     Route: 048
     Dates: start: 20170614, end: 20170624
  7. ANTICOAGULANTS [Concomitant]
     Active Substance: UNSPECIFIED INGREDIENT
     Dosage: 3000.0IU UNKNOWN
     Route: 065
  8. EFIENT [Suspect]
     Active Substance: PRASUGREL HYDROCHLORIDE
     Indication: ACUTE MYOCARDIAL INFARCTION
     Route: 065
     Dates: start: 20170625

REACTIONS (1)
  - Drug eruption [Recovered/Resolved]

NARRATIVE: CASE EVENT DATE: 20170622
